FAERS Safety Report 9559222 (Version 2)
Quarter: 2014Q2

REPORT INFORMATION
  Report Type: Spontaneous
  Country: US (occurrence: None)
  Receive Date: 20130906
  Receipt Date: 20140416
  Transmission Date: 20141212
  Serious: Yes (Other)
  Sender: FDA-Public Use
  Company Number: 163-POMAL-13070187

PATIENT
  Age: 75 Year
  Sex: Female
  Weight: 43.09 kg

DRUGS (5)
  1. POMALYST [Suspect]
     Indication: PLASMA CELL MYELOMA
     Dosage: 4 MG, 21 IN 21 D, PO
     Route: 048
     Dates: start: 20130527
  2. METOPROLOL (METOPROLOL) [Concomitant]
  3. POMALYST (POMALIDOMIDE) (4 MILLIGRAM, CAPSULES) [Concomitant]
     Route: 048
     Dates: start: 20130527
  4. METOPROLOL (METOPROLOL) [Concomitant]
  5. ISOSORBIDE MONO (ISOSORBIDE MONONITRATE) [Concomitant]

REACTIONS (7)
  - Dysphonia [None]
  - Asthenia [None]
  - Rash [None]
  - Nausea [None]
  - Fatigue [None]
  - Myalgia [None]
  - Feeling abnormal [None]
